FAERS Safety Report 8394951-3 (Version None)
Quarter: 2012Q2

REPORT INFORMATION
  Report Type: 
  Country: None (occurrence: None)
  Receive Date: 20120530
  Receipt Date: 20111202
  Transmission Date: 20120825
  Serious: No
  Sender: FDA-Public Use
  Company Number: US-GLAXOSMITHKLINE-A0957205A

PATIENT
  Age: 57 Year
  Sex: Male

DRUGS (4)
  1. FLOLAN [Suspect]
     Indication: PRODUCT USED FOR UNKNOWN INDICATION
     Route: 065
  2. LETAIRIS [Suspect]
     Indication: PULMONARY ARTERIAL HYPERTENSION
     Dosage: 10MG UNKNOWN
     Route: 048
  3. EPOPROSTENOL [Concomitant]
  4. VENTAVIS [Concomitant]

REACTIONS (4)
  - HEADACHE [None]
  - FLUSHING [None]
  - PAIN IN JAW [None]
  - DIARRHOEA [None]
